FAERS Safety Report 5660483-6 (Version None)
Quarter: 2008Q1

REPORT INFORMATION
  Report Type: 
  Country: None (occurrence: None)
  Receive Date: 20080306
  Receipt Date: 20080223
  Transmission Date: 20080703
  Serious: Yes (Hospitalization)
  Sender: FDA-Public Use
  Company Number: GXKR2008DK02060

PATIENT
  Age: 43 Year
  Sex: Female
  Weight: 75 kg

DRUGS (4)
  1. VIBRADOX               (DOXYCYCLINE) [Suspect]
     Indication: SINUSITIS
     Dosage: ORAL
     Route: 048
     Dates: start: 20080212
  2. TERBUTALINE SULFATE [Concomitant]
  3. PULMICORT [Concomitant]
  4. NASONEX           (MOMETASONE FUROATE) NASAL SPRAY [Concomitant]

REACTIONS (8)
  - DIZZINESS [None]
  - FEELING ABNORMAL [None]
  - HEADACHE [None]
  - HYPERTENSION [None]
  - LIP DISORDER [None]
  - OEDEMA PERIPHERAL [None]
  - ORAL DISORDER [None]
  - TONGUE DISORDER [None]
